FAERS Safety Report 9528107 (Version 3)
Quarter: 2014Q1

REPORT INFORMATION
  Report Type: Spontaneous
  Country: GB (occurrence: GB)
  Receive Date: 20130917
  Receipt Date: 20140130
  Transmission Date: 20141002
  Serious: Yes (Death, Other)
  Sender: FDA-Public Use
  Company Number: GB-JNJFOC-20130908273

PATIENT
  Age: 70 Year
  Sex: Male
  Weight: 80 kg

DRUGS (12)
  1. XARELTO [Suspect]
     Indication: THROMBOSIS PROPHYLAXIS
     Route: 048
     Dates: start: 20130905, end: 20130907
  2. XARELTO [Suspect]
     Indication: DEEP VEIN THROMBOSIS
     Route: 048
     Dates: start: 20130905, end: 20130907
  3. CLEXANE [Suspect]
     Indication: OPEN REDUCTION OF FRACTURE
     Route: 058
     Dates: start: 20130903, end: 20130905
  4. CLEXANE [Suspect]
     Indication: OPEN REDUCTION OF FRACTURE
     Route: 058
     Dates: start: 20130715, end: 20130825
  5. CO-CODAMOL [Concomitant]
     Route: 065
  6. DUTASTERIDE [Concomitant]
     Route: 065
  7. LEVOTHYROXINE [Concomitant]
     Route: 065
  8. NATECAL D [Concomitant]
     Route: 065
  9. OMEPRAZOLE [Concomitant]
     Route: 065
  10. RISEDRONIC ACID [Concomitant]
     Route: 065
  11. TAMSULOSIN [Concomitant]
     Route: 065
  12. THIAMINE [Concomitant]
     Route: 065

REACTIONS (3)
  - Pulmonary embolism [Fatal]
  - Cardiac arrest [Fatal]
  - Drug ineffective [Unknown]
